FAERS Safety Report 19614597 (Version 1)
Quarter: 2021Q3

REPORT INFORMATION
  Report Type: Spontaneous
  Country: US (occurrence: US)
  Receive Date: 20210727
  Receipt Date: 20210727
  Transmission Date: 20211014
  Serious: No
  Sender: FDA-Public Use
  Company Number: None

PATIENT
  Sex: Female
  Weight: 49.05 kg

DRUGS (17)
  1. MORPHINE ER [Concomitant]
     Active Substance: MORPHINE
  2. DIAZEPAM. [Concomitant]
     Active Substance: DIAZEPAM
  3. IMODIUM [Concomitant]
     Active Substance: LOPERAMIDE HYDROCHLORIDE
  4. XGEVA [Concomitant]
     Active Substance: DENOSUMAB
  5. NYSTATIN?TRIAMCINOLONE [Concomitant]
  6. CICLOPIROX. [Concomitant]
     Active Substance: CICLOPIROX
  7. MULTIVITAMIN [Concomitant]
     Active Substance: VITAMINS
  8. ONDANSETRON [Concomitant]
     Active Substance: ONDANSETRON
  9. SYNTHROID [Concomitant]
     Active Substance: LEVOTHYROXINE SODIUM
  10. CARAFATE [Concomitant]
     Active Substance: SUCRALFATE
  11. MUPIROCIN. [Concomitant]
     Active Substance: MUPIROCIN
  12. COLACE [Concomitant]
     Active Substance: DOCUSATE SODIUM
  13. PRILOSEC [Concomitant]
     Active Substance: OMEPRAZOLE MAGNESIUM
  14. EXEMESTANE. [Suspect]
     Active Substance: EXEMESTANE
     Indication: BREAST CANCER
     Route: 048
  15. GAS?X EXTRA STRENGTH [Concomitant]
     Active Substance: DIMETHICONE
  16. OXYCODONE [Concomitant]
     Active Substance: OXYCODONE
  17. SENOKOT [Concomitant]
     Active Substance: SENNOSIDES

REACTIONS (1)
  - Disease progression [None]
